FAERS Safety Report 15905670 (Version 2)
Quarter: 2019Q1

REPORT INFORMATION
  Report Type: Spontaneous
  Country: CH (occurrence: CH)
  Receive Date: 20190204
  Receipt Date: 20190227
  Transmission Date: 20190417
  Serious: Yes (Hospitalization)
  Sender: FDA-Public Use
  Company Number: CH-JNJFOC-20181137757

PATIENT
  Age: 47 Year
  Sex: Female

DRUGS (7)
  1. MEPHAMESON [Concomitant]
     Active Substance: DEXAMETHASONE
     Indication: PRODUCT USED FOR UNKNOWN INDICATION
     Route: 042
  2. VALTREX [Concomitant]
     Active Substance: VALACYCLOVIR HYDROCHLORIDE
     Indication: PROPHYLAXIS
     Route: 065
  3. TAVEGYL [Concomitant]
     Active Substance: CLEMASTINE FUMARATE
     Indication: PRODUCT USED FOR UNKNOWN INDICATION
     Route: 042
  4. DARZALEX [Suspect]
     Active Substance: DARATUMUMAB
     Indication: HYPERGAMMAGLOBULINAEMIA BENIGN MONOCLONAL
     Route: 042
     Dates: start: 20181205, end: 20181205
  5. DARZALEX [Suspect]
     Active Substance: DARATUMUMAB
     Indication: PLASMA CELL MYELOMA
     Route: 042
     Dates: start: 20181205, end: 20181205
  6. DARZALEX [Suspect]
     Active Substance: DARATUMUMAB
     Indication: AMYLOIDOSIS
     Route: 042
     Dates: start: 20181205, end: 20181205
  7. DAFALGAN [Concomitant]
     Active Substance: ACETAMINOPHEN
     Indication: PRODUCT USED FOR UNKNOWN INDICATION
     Route: 048

REACTIONS (9)
  - Necrosis [Recovering/Resolving]
  - Rhinitis [Recovering/Resolving]
  - Conjunctivitis [Recovering/Resolving]
  - Off label use [Unknown]
  - Polyneuropathy [Unknown]
  - Cough [Recovering/Resolving]
  - Product use in unapproved indication [Unknown]
  - Atheroembolism [Unknown]
  - Blood albumin increased [Unknown]

NARRATIVE: CASE EVENT DATE: 20181205
